FAERS Safety Report 6265415-8 (Version None)
Quarter: 2009Q3

REPORT INFORMATION
  Report Type: 
  Country: None (occurrence: None)
  Receive Date: 20090713
  Receipt Date: 20090706
  Transmission Date: 20100115
  Serious: Yes (Other)
  Sender: FDA-Public Use
  Company Number: US-BRISTOL-MYERS SQUIBB COMPANY-14695829

PATIENT
  Age: 54 Year
  Sex: Female

DRUGS (3)
  1. COUMADIN [Suspect]
  2. LOVENOX [Suspect]
     Indication: PROTEIN C DEFICIENCY
     Dosage: SOLN FOR INJ 120MG FROM 1999 80MG ONCE DAILY FOR AT LEAST LAST THREE YEARS
     Dates: start: 19990101
  3. LOVENOX [Suspect]
     Indication: PROTEIN S DEFICIENCY
     Dosage: SOLN FOR INJ 120MG FROM 1999 80MG ONCE DAILY FOR AT LEAST LAST THREE YEARS
     Dates: start: 19990101

REACTIONS (2)
  - THROMBOCYTOPENIA [None]
  - THROMBOSIS [None]
